FAERS Safety Report 10113444 (Version 1)
Quarter: 2014Q2

REPORT INFORMATION
  Report Type: Spontaneous
  Country: US (occurrence: US)
  Receive Date: 20140425
  Receipt Date: 20140425
  Transmission Date: 20141212
  Serious: Yes (Hospitalization, Other)
  Sender: FDA-Public Use
  Company Number: US-BAYER-2014-059403

PATIENT
  Age: 46 Year
  Sex: Female
  Weight: 72.56 kg

DRUGS (9)
  1. YAZ [Suspect]
  2. PHOSLO [Concomitant]
     Dosage: 667 MG, UNK
  3. FOLIC ACID [Concomitant]
     Dosage: 1 MG, UNK
  4. SERTRALINE HYDROCHLORIDE [Concomitant]
     Dosage: 100 MG, UNK
  5. PROCRIT [Concomitant]
     Dosage: 20000 ML, UNK
  6. FEXOFENADINE HYDROCHLORIDE [Concomitant]
     Dosage: 180 MG, UNK
  7. CODEINE PHOSPHATE [Concomitant]
  8. ZOLOFT [Concomitant]
  9. COLACE [Concomitant]

REACTIONS (2)
  - Pulmonary embolism [Recovered/Resolved]
  - Thrombophlebitis superficial [None]
